FAERS Safety Report 14765249 (Version 5)
Quarter: 2020Q3

REPORT INFORMATION
  Report Type: Report from Study
  Country: ES (occurrence: ES)
  Receive Date: 20180416
  Receipt Date: 20200205
  Transmission Date: 20201105
  Serious: Yes (Hospitalization)
  Sender: FDA-Public Use
  Company Number: ES-JNJFOC-20180413409

PATIENT
  Age: 41 Year
  Sex: Male
  Weight: 98 kg

DRUGS (2)
  1. TRABECTEDIN [Suspect]
     Active Substance: TRABECTEDIN
     Indication: SYNOVIAL SARCOMA METASTATIC
     Dosage: CYCLE 1 TO 3
     Route: 042
     Dates: start: 20180109, end: 2018
  2. TRABECTEDIN [Suspect]
     Active Substance: TRABECTEDIN
     Dosage: CYCLE 4
     Route: 042
     Dates: start: 20180326

REACTIONS (1)
  - Sepsis [Recovered/Resolved]

NARRATIVE: CASE EVENT DATE: 20180409
